FAERS Safety Report 15963539 (Version 1)
Quarter: 2019Q1

REPORT INFORMATION
  Report Type: Spontaneous
  Country: US (occurrence: US)
  Receive Date: 20190214
  Receipt Date: 20190214
  Transmission Date: 20190417
  Serious: No
  Sender: FDA-Public Use
  Company Number: US-NEXGEN PHARMA, INC.-2062695

PATIENT
  Age: 33 Year
  Sex: Male

DRUGS (3)
  1. BREO ELLIPTA [Concomitant]
     Active Substance: FLUTICASONE FUROATE\VILANTEROL TRIFENATATE
  2. CPAP MACHINE [Concomitant]
  3. CHENODAL [Suspect]
     Active Substance: CHENODIOL
     Indication: LIPID METABOLISM DISORDER
     Route: 048
     Dates: start: 20180526

REACTIONS (6)
  - Dry throat [Not Recovered/Not Resolved]
  - Sleep disorder [None]
  - Dry mouth [None]
  - Agitation [None]
  - Oropharyngeal pain [None]
  - Anxiety [None]
